FAERS Safety Report 11993491 (Version 1)
Quarter: 2016Q1

REPORT INFORMATION
  Report Type: Spontaneous
  Country: US (occurrence: US)
  Receive Date: 20160203
  Receipt Date: 20160203
  Transmission Date: 20160526
  Serious: No
  Sender: FDA-Public Use
  Company Number: US-PFIZER INC-2016025085

PATIENT
  Age: 57 Year
  Sex: Female
  Weight: 69.62 kg

DRUGS (1)
  1. XALKORI [Suspect]
     Active Substance: CRIZOTINIB
     Indication: ANAPLASTIC LARGE-CELL LYMPHOMA
     Dosage: 250 MG, 2X/DAY
     Route: 048
     Dates: start: 20140324

REACTIONS (6)
  - Nodule [Unknown]
  - Pain in extremity [Unknown]
  - Arthralgia [Unknown]
  - Dyspnoea [Unknown]
  - Back pain [Unknown]
  - Product use issue [Unknown]
